FAERS Safety Report 6618294-0 (Version None)
Quarter: 2010Q1

REPORT INFORMATION
  Report Type: 
  Country: None (occurrence: None)
  Receive Date: 20100302
  Receipt Date: 20100217
  Transmission Date: 20100710
  Serious: Yes (Other)
  Sender: FDA-Public Use
  Company Number: 2010AP000317

PATIENT
  Age: 65 Year
  Sex: Male

DRUGS (5)
  1. FLUTICASONE PROPIONATE NASAL SPRAY [Suspect]
     Indication: NASAL DISCOMFORT
     Dosage: 1 DF;QD; NAS
     Route: 045
     Dates: start: 20091201, end: 20100214
  2. FLUTICASONE PROPIONATE NASAL SPRAY [Suspect]
     Indication: SNEEZING
     Dosage: 1 DF;QD; NAS
     Route: 045
     Dates: start: 20091201, end: 20100214
  3. ACETYLSALICYCIC ACID [Concomitant]
  4. ATOSUVASTATIN [Concomitant]
  5. MOMETASONE FUROATE [Concomitant]

REACTIONS (5)
  - DIZZINESS POSTURAL [None]
  - FALL [None]
  - FEELING ABNORMAL [None]
  - HYPOTENSION [None]
  - LOSS OF CONSCIOUSNESS [None]
